FAERS Safety Report 10017571 (Version 2)
Quarter: 2014Q1

REPORT INFORMATION
  Report Type: Spontaneous
  Country: US (occurrence: US)
  Receive Date: 20140318
  Receipt Date: 20140318
  Transmission Date: 20141002
  Serious: No
  Sender: FDA-Public Use
  Company Number: US-BRISTOL-MYERS SQUIBB COMPANY-17354556

PATIENT
  Age: 87 Year
  Sex: Male
  Weight: 59.86 kg

DRUGS (9)
  1. ERBITUX [Suspect]
     Indication: TONGUE NEOPLASM MALIGNANT STAGE UNSPECIFIED
     Dosage: FORMULATION:INFUSION
     Route: 042
     Dates: start: 20130204
  2. BENADRYL [Concomitant]
     Indication: PREMEDICATION
     Route: 042
  3. FERROUS SULFATE [Concomitant]
     Indication: PREMEDICATION
  4. AMLODIPINE [Concomitant]
     Indication: PREMEDICATION
  5. FAMOTIDINE [Concomitant]
     Indication: PREMEDICATION
  6. GLIPIZIDE [Concomitant]
     Indication: PREMEDICATION
  7. HYDROCHLOROTHIAZIDE [Concomitant]
     Indication: PREMEDICATION
  8. LORTAB [Concomitant]
     Indication: PREMEDICATION
  9. METFORMIN [Concomitant]
     Indication: PREMEDICATION

REACTIONS (2)
  - Fatigue [Unknown]
  - Anxiety [Unknown]
